FAERS Safety Report 17342504 (Version 1)
Quarter: 2020Q1

REPORT INFORMATION
  Report Type: Spontaneous
  Country: US (occurrence: US)
  Receive Date: 20200129
  Receipt Date: 20200129
  Transmission Date: 20200409
  Serious: No
  Sender: FDA-Public Use
  Company Number: US-ALLERGAN-1926418US

PATIENT
  Age: 64 Year
  Sex: Female

DRUGS (1)
  1. BOTOX [Suspect]
     Active Substance: ONABOTULINUMTOXINA
     Indication: MIGRAINE
     Dosage: UNCONFIRMED BUT THINKS 155 UNIT TOTAL WAS
     Dates: start: 20190618, end: 20190618

REACTIONS (3)
  - Vision blurred [Recovering/Resolving]
  - Eyelid ptosis [Recovering/Resolving]
  - Photopsia [Recovering/Resolving]

NARRATIVE: CASE EVENT DATE: 201906
